FAERS Safety Report 8190069-3 (Version None)
Quarter: 2012Q1

REPORT INFORMATION
  Report Type: 
  Country: None (occurrence: None)
  Receive Date: 20120307
  Receipt Date: 20120229
  Transmission Date: 20120608
  Serious: Yes (Other)
  Sender: FDA-Public Use
  Company Number: US-BAYER-2012-020408

PATIENT
  Sex: Female

DRUGS (1)
  1. BETASERON [Suspect]
     Indication: MULTIPLE SCLEROSIS
     Dosage: UNK UNK, QOD
     Route: 058
     Dates: start: 20060214

REACTIONS (5)
  - SEIZURE LIKE PHENOMENA [None]
  - MALAISE [None]
  - ASTHENIA [None]
  - MULTIPLE SCLEROSIS [None]
  - LOSS OF CONSCIOUSNESS [None]
